FAERS Safety Report 24797116 (Version 1)
Quarter: 2025Q1

REPORT INFORMATION
  Report Type: Spontaneous
  Country: US (occurrence: US)
  Receive Date: 20250101
  Receipt Date: 20250101
  Transmission Date: 20250409
  Serious: No
  Sender: JOHNSON AND JOHNSON
  Company Number: US-JNJFOC-20241258675

PATIENT
  Age: 42 Year
  Sex: Female

DRUGS (1)
  1. SPRAVATO [Suspect]
     Active Substance: ESKETAMINE
     Indication: Depression
     Route: 045
     Dates: start: 20241202

REACTIONS (3)
  - Urinary tract infection [Unknown]
  - Sensory disturbance [Unknown]
  - Genital pain [Unknown]

NARRATIVE: CASE EVENT DATE: 20241213
